FAERS Safety Report 25920777 (Version 1)
Quarter: 2025Q4

REPORT INFORMATION
  Report Type: Spontaneous
  Country: JP (occurrence: JP)
  Receive Date: 20251014
  Receipt Date: 20251014
  Transmission Date: 20260118
  Serious: Yes (Hospitalization)
  Sender: SUNOVION
  Company Number: JP-SMPA-2025SMP008818

PATIENT
  Age: 6 Decade
  Sex: Male

DRUGS (1)
  1. LATUDA [Suspect]
     Active Substance: LURASIDONE HYDROCHLORIDE
     Indication: Schizophrenia
     Dosage: 40 MG TO 60 MG, QD
     Route: 048

REACTIONS (2)
  - Symptom recurrence [Recovered/Resolved]
  - Product dose omission issue [Unknown]
